FAERS Safety Report 7600020-X (Version None)
Quarter: 2011Q3

REPORT INFORMATION
  Report Type: 
  Country: None (occurrence: None)
  Receive Date: 20110711
  Receipt Date: 20110627
  Transmission Date: 20111222
  Serious: Yes (Other)
  Sender: FDA-Public Use
  Company Number: US-BAYER-2011-021244

PATIENT
  Age: 27 Year
  Sex: Female
  Weight: 86.168 kg

DRUGS (2)
  1. YAZ [Suspect]
     Indication: ORAL CONTRACEPTION
     Dosage: UNK UNK, QD
     Dates: start: 20080801, end: 20090201
  2. VALTREX [Concomitant]

REACTIONS (10)
  - VOMITING [None]
  - MENSTRUATION DELAYED [None]
  - GALLBLADDER INJURY [None]
  - WEIGHT DECREASED [None]
  - HEADACHE [None]
  - PAIN [None]
  - GASTRIC DISORDER [None]
  - INJURY [None]
  - ALOPECIA [None]
  - BILIARY DYSKINESIA [None]
